FAERS Safety Report 15048884 (Version 2)
Quarter: 2018Q3

REPORT INFORMATION
  Report Type: Spontaneous
  Country: DE (occurrence: DE)
  Receive Date: 20180622
  Receipt Date: 20180711
  Transmission Date: 20181010
  Serious: Yes (Hospitalization, Other)
  Sender: FDA-Public Use
  Company Number: DE-BRISTOL-MYERS SQUIBB COMPANY-BMS-2018-056373

PATIENT
  Age: 86 Year
  Sex: Male

DRUGS (1)
  1. ELIQUIS [Suspect]
     Active Substance: APIXABAN
     Indication: THROMBOSIS PROPHYLAXIS
     Dosage: 2.5 MG, BID
     Route: 048
     Dates: start: 20170714

REACTIONS (8)
  - Malaise [Unknown]
  - Pulmonary congestion [Unknown]
  - Epistaxis [Unknown]
  - Haemorrhage [Unknown]
  - Skin discolouration [Unknown]
  - Blood urine present [Unknown]
  - Ear haemorrhage [Unknown]
  - Acne [Unknown]

NARRATIVE: CASE EVENT DATE: 201805
